FAERS Safety Report 7231903-0 (Version None)
Quarter: 2011Q1

REPORT INFORMATION
  Report Type: 
  Country: None (occurrence: None)
  Receive Date: 20110118
  Receipt Date: 20110111
  Transmission Date: 20110831
  Serious: Yes (Life-Threatening, Hospitalization)
  Sender: FDA-Public Use
  Company Number: PHHY2011BE02090

PATIENT
  Age: 69 Year
  Sex: Male

DRUGS (3)
  1. ANDROCUR [Concomitant]
     Indication: PROSTATE CANCER
     Dosage: 50 MG, TID
     Dates: start: 20101230
  2. ZOMETA [Suspect]
     Dosage: 5 MG, UNK
     Dates: start: 20101227
  3. DAFALGAN [Concomitant]
     Indication: BONE PAIN
     Dosage: 1 G, TID

REACTIONS (7)
  - MALAISE [None]
  - MULTI-ORGAN FAILURE [None]
  - HEPATIC FUNCTION ABNORMAL [None]
  - GENERAL PHYSICAL HEALTH DETERIORATION [None]
  - CARDIAC ARREST [None]
  - RENAL IMPAIRMENT [None]
  - COMA [None]
